FAERS Safety Report 4544930-9 (Version None)
Quarter: 2005Q1

REPORT INFORMATION
  Report Type: 
  Country: None (occurrence: None)
  Receive Date: 20050105
  Receipt Date: 20041108
  Transmission Date: 20050727
  Serious: No
  Sender: FDA-Public Use
  Company Number: US-GLAXOSMITHKLINE-A0533074A

PATIENT
  Age: 63 Year
  Sex: Female

DRUGS (6)
  1. ARIXTRA [Suspect]
     Indication: PROPHYLAXIS
     Dosage: 2.5MG PER DAY
     Route: 058
     Dates: start: 20041022
  2. CALTRATE [Concomitant]
  3. TYLENOL [Concomitant]
  4. MAVIK [Concomitant]
  5. TOPROL-XL [Concomitant]
  6. HYDROCHLOROTHIAZIDE [Concomitant]

REACTIONS (2)
  - BLOOD PRESSURE INCREASED [None]
  - VERTIGO [None]
